FAERS Safety Report 18377926 (Version 2)
Quarter: 2020Q4

REPORT INFORMATION
  Report Type: Spontaneous
  Country: US (occurrence: US)
  Receive Date: 20201013
  Receipt Date: 20201019
  Transmission Date: 20210114
  Serious: No
  Sender: FDA-Public Use
  Company Number: US-PFIZER INC-2020359940

PATIENT
  Age: 63 Year
  Sex: Female

DRUGS (2)
  1. XELJANZ [Suspect]
     Active Substance: TOFACITINIB CITRATE
     Indication: CONSTIPATION
  2. XELJANZ [Suspect]
     Active Substance: TOFACITINIB CITRATE
     Indication: IRRITABLE BOWEL SYNDROME
     Dosage: 10 MG
     Dates: start: 20200914

REACTIONS (5)
  - Off label use [Unknown]
  - Diarrhoea [Unknown]
  - Feeding disorder [Unknown]
  - Product use in unapproved indication [Unknown]
  - Colitis [Unknown]

NARRATIVE: CASE EVENT DATE: 2020
